FAERS Safety Report 15256176 (Version 1)
Quarter: 2018Q3

REPORT INFORMATION
  Report Type: Report from Study
  Country: FR (occurrence: FR)
  Receive Date: 20180808
  Receipt Date: 20180808
  Transmission Date: 20181010
  Serious: Yes (Death, Hospitalization, Other)
  Sender: FDA-Public Use
  Company Number: FR-GLAXOSMITHKLINE-FR2018141245

PATIENT
  Age: 64 Year
  Sex: Female
  Weight: 53 kg

DRUGS (13)
  1. UPTRAVI [Suspect]
     Active Substance: SELEXIPAG
     Dosage: 400 ?G, BID
     Route: 048
     Dates: start: 20180329
  2. BOSENTAN. [Concomitant]
     Active Substance: BOSENTAN
     Indication: PULMONARY ARTERIAL HYPERTENSION
     Dosage: 125 MG, BID
     Route: 048
  3. EPOPROSTENOL SODIUM. [Suspect]
     Active Substance: EPOPROSTENOL SODIUM
     Dosage: 3 NG/KG, PER MIN
     Route: 042
     Dates: start: 201806
  4. UPTRAVI [Suspect]
     Active Substance: SELEXIPAG
     Dosage: 800 ?G, QD
     Route: 048
     Dates: start: 20180613, end: 20180620
  5. EPOPROSTENOL SODIUM. [Suspect]
     Active Substance: EPOPROSTENOL SODIUM
     Dosage: 5 NG/KG, PER MIN
     Route: 042
     Dates: start: 201806
  6. UPTRAVI [Suspect]
     Active Substance: SELEXIPAG
     Indication: PULMONARY ARTERIAL HYPERTENSION
     Dosage: 1000 ?G, BID
     Route: 048
     Dates: start: 20180503
  7. UPTRAVI [Suspect]
     Active Substance: SELEXIPAG
     Dosage: 200 ?G, BID
     Route: 048
     Dates: start: 20180317
  8. UPTRAVI [Suspect]
     Active Substance: SELEXIPAG
     Dosage: 1000 ?G, BID
     Route: 048
     Dates: start: 20180419
  9. UPTRAVI [Suspect]
     Active Substance: SELEXIPAG
     Dosage: 800 ?G, BID
     Route: 048
     Dates: start: 20180522
  10. UPTRAVI [Suspect]
     Active Substance: SELEXIPAG
     Dosage: 800 ?G, BID
     Route: 048
     Dates: start: 20180412
  11. UPTRAVI [Suspect]
     Active Substance: SELEXIPAG
     Dosage: 1200 ?G, BID
     Route: 048
     Dates: start: 20180426
  12. EPOPROSTENOL SODIUM. [Suspect]
     Active Substance: EPOPROSTENOL SODIUM
     Indication: PULMONARY ARTERIAL HYPERTENSION
     Dosage: 7 NG/KG, 7 NG/KG, PER MIN
     Route: 042
     Dates: start: 201806
  13. UPTRAVI [Suspect]
     Active Substance: SELEXIPAG
     Dosage: 600 ?G, BID
     Route: 048
     Dates: start: 20180405

REACTIONS (20)
  - Oxygen saturation decreased [Not Recovered/Not Resolved]
  - Respiratory disorder [Recovered/Resolved]
  - Hypotension [Unknown]
  - Right ventricular failure [Fatal]
  - Dyspnoea [Unknown]
  - Hot flush [Recovered/Resolved]
  - Dry mouth [Not Recovered/Not Resolved]
  - Drug dose omission [Unknown]
  - Anxiety [Recovered/Resolved]
  - Pulmonary arterial hypertension [Fatal]
  - Hypophagia [Fatal]
  - Nausea [Not Recovered/Not Resolved]
  - Condition aggravated [Fatal]
  - Transfusion [Unknown]
  - Pleural effusion [Not Recovered/Not Resolved]
  - Fatigue [Unknown]
  - Tachycardia [Not Recovered/Not Resolved]
  - Pulmonary embolism [Fatal]
  - Pain in jaw [Unknown]
  - Decreased appetite [Not Recovered/Not Resolved]

NARRATIVE: CASE EVENT DATE: 20180317
